FAERS Safety Report 26002695 (Version 1)
Quarter: 2025Q4

REPORT INFORMATION
  Report Type: Spontaneous
  Country: US (occurrence: US)
  Receive Date: 20251106
  Receipt Date: 20251106
  Transmission Date: 20260118
  Serious: Yes (Other)
  Sender: ABBVIE
  Company Number: US-ABBVIE-6534233

PATIENT
  Age: 59 Year

DRUGS (6)
  1. VENETOCLAX [Suspect]
     Active Substance: VENETOCLAX
     Indication: T-cell prolymphocytic leukaemia
     Route: 048
  2. VENETOCLAX [Suspect]
     Active Substance: VENETOCLAX
     Indication: T-cell prolymphocytic leukaemia
     Dosage: ESCALATED OVER 4 DAYS TO A DOSE OF 600 MG.
     Route: 048
  3. ALEMTUZUMAB [Suspect]
     Active Substance: ALEMTUZUMAB
     Indication: T-cell prolymphocytic leukaemia
     Route: 065
  4. CLADRIBINE [Suspect]
     Active Substance: CLADRIBINE
     Indication: T-cell prolymphocytic leukaemia
     Dosage: 3.75 MG/M2
     Route: 042
  5. POSACONAZOLE [Suspect]
     Active Substance: POSACONAZOLE
     Indication: T-cell prolymphocytic leukaemia
     Route: 065
  6. RUXOLITINIB [Suspect]
     Active Substance: RUXOLITINIB
     Indication: T-cell prolymphocytic leukaemia
     Dosage: DAY 5
     Route: 065

REACTIONS (10)
  - Acute kidney injury [Unknown]
  - Pancreatitis [Unknown]
  - Myelosuppression [Unknown]
  - Aspartate aminotransferase increased [Unknown]
  - Nausea [Unknown]
  - Febrile neutropenia [Unknown]
  - Off label use [Unknown]
  - Atrial fibrillation [Unknown]
  - Staphylococcal bacteraemia [Unknown]
  - Alanine aminotransferase increased [Unknown]
